FAERS Safety Report 22880460 (Version 3)
Quarter: 2023Q4

REPORT INFORMATION
  Report Type: Spontaneous
  Country: US (occurrence: None)
  Receive Date: 20230829
  Receipt Date: 20231027
  Transmission Date: 20240110
  Serious: Yes (Hospitalization, Other)
  Sender: FDA-Public Use
  Company Number: US-ROCHE-3410209

PATIENT
  Age: 64 Year
  Sex: Female

DRUGS (7)
  1. LUNSUMIO [Suspect]
     Active Substance: MOSUNETUZUMAB-AXGB
     Indication: Follicular lymphoma
     Route: 042
     Dates: start: 201909, end: 2021
  2. LUNSUMIO [Suspect]
     Active Substance: MOSUNETUZUMAB-AXGB
     Route: 042
     Dates: start: 20230907
  3. LUNSUMIO [Suspect]
     Active Substance: MOSUNETUZUMAB-AXGB
     Dosage: RECEIVED THREE CYCLES
     Route: 042
     Dates: start: 2021, end: 2021
  4. LUNSUMIO [Suspect]
     Active Substance: MOSUNETUZUMAB-AXGB
     Dosage: RECEIVED THREE CYCLES
     Route: 042
     Dates: start: 2018, end: 2018
  5. NEUPOGEN [Concomitant]
     Active Substance: FILGRASTIM
     Dates: start: 2021
  6. BENDAMUSTINE [Concomitant]
     Active Substance: BENDAMUSTINE
     Indication: Follicular lymphoma
     Dosage: 6 CYCLES
     Dates: start: 2021
  7. FLUDARABINE [Concomitant]
     Active Substance: FLUDARABINE PHOSPHATE
     Indication: Follicular lymphoma
     Dosage: 2 CYCLES
     Dates: start: 1999

REACTIONS (11)
  - Pneumonia cryptococcal [Not Recovered/Not Resolved]
  - Cytokine release syndrome [Recovered/Resolved]
  - Recurrent cancer [Not Recovered/Not Resolved]
  - Enuresis [Unknown]
  - Ureteral neoplasm [Unknown]
  - Headache [Recovered/Resolved]
  - Fatigue [Recovered/Resolved]
  - Sinusitis [Unknown]
  - Pyrexia [Unknown]
  - Blood immunoglobulin G decreased [Unknown]
  - Recurrent cancer [Not Recovered/Not Resolved]

NARRATIVE: CASE EVENT DATE: 20190101
